FAERS Safety Report 4445401-0 (Version None)
Quarter: 2004Q3

REPORT INFORMATION
  Report Type: 
  Country: None (occurrence: None)
  Receive Date: 20040730
  Receipt Date: 20031112
  Transmission Date: 20050211
  Serious: Yes (Hospitalization)
  Sender: FDA-Public Use
  Company Number: 103423ISR

PATIENT
  Age: 57 Year
  Sex: Female
  Weight: 59 kg

DRUGS (7)
  1. VINCRISTINE TEVA [Suspect]
     Indication: NON-HODGKIN'S LYMPHOMA
     Dosage: 2 MG, QD INTRAVENOUS (NOS)
     Route: 042
     Dates: start: 20030410, end: 20030410
  2. DOXORUBICINE TEVA [Suspect]
     Indication: NON-HODGKIN'S LYMPHOMA
     Dosage: 85 MG DAILY INTRAVENOUS (NOS)
     Route: 042
     Dates: start: 20030410, end: 20030410
  3. ENDOXAN [Suspect]
     Indication: NON-HODGKIN'S LYMPHOMA
     Dosage: 1300 MG QD INTRAVENOUS (NOS)
     Route: 042
     Dates: start: 20030410, end: 20030410
  4. PREDNISONE [Suspect]
     Indication: NON-HODGKIN'S LYMPHOMA
     Dosage: 80 MG QD ORAL
     Route: 048
     Dates: start: 20030410, end: 20030414
  5. MABTHERA (RITUXIMAB) [Suspect]
     Dosage: 600 MG DAILY INTRAVENOUS (NOS)
     Route: 042
     Dates: start: 20030410, end: 20030410
  6. ZOPHREN [Concomitant]
  7. WELLVONE [Concomitant]

REACTIONS (2)
  - ILEUS PARALYTIC [None]
  - PAIN IN JAW [None]
